FAERS Safety Report 4477799-1 (Version None)
Quarter: 2004Q4

REPORT INFORMATION
  Report Type: 
  Country: None (occurrence: None)
  Receive Date: 20041014
  Receipt Date: 20041005
  Transmission Date: 20050328
  Serious: Yes (Hospitalization)
  Sender: FDA-Public Use
  Company Number: TCI2004A03608

PATIENT
  Age: 55 Year
  Sex: Female

DRUGS (3)
  1. ACTOS [Suspect]
     Indication: DIABETES MELLITUS NON-INSULIN-DEPENDENT
     Dosage: 15 MG (15 MG, 15 MG, 1 D) PER ORAL
     Route: 048
     Dates: start: 20030918
  2. BASEN (VOGLIBOSE) [Suspect]
     Indication: DIABETES MELLITUS NON-INSULIN-DEPENDENT
     Dosage: 0.6MG (0.6 MG, 1 D) PER ORAL
     Route: 048
     Dates: start: 20030918
  3. GLYCYRON [Concomitant]

REACTIONS (1)
  - GASTRIC ULCER [None]
